FAERS Safety Report 9250399 (Version 1)
Quarter: 2013Q1

REPORT INFORMATION
  Report Type: Spontaneous
  Country: US (occurrence: None)
  Receive Date: 20130305
  Receipt Date: 20130305
  Transmission Date: 20140127
  Serious: Yes (Hospitalization, Other)
  Sender: FDA-Public Use
  Company Number: 163-21880-12062678

PATIENT
  Age: 82 Year
  Sex: Female
  Weight: 43.55 kg

DRUGS (2)
  1. REVLIMID [Suspect]
     Indication: PLASMA CELL MYELOMA
     Dosage: 15 MG, 1 CAPSULE DAILY 3 WEEKS, 1 WEEK OFF, PO
     Route: 048
     Dates: start: 20110914
  2. WHOLE BLOOD [Suspect]

REACTIONS (2)
  - Full blood count decreased [None]
  - Therapeutic response decreased [None]
